FAERS Safety Report 25345928 (Version 2)
Quarter: 2025Q2

REPORT INFORMATION
  Report Type: Report from Study
  Country: US (occurrence: US)
  Receive Date: 20250522
  Receipt Date: 20250529
  Transmission Date: 20250716
  Serious: Yes (Other)
  Sender: TAKEDA
  Company Number: US-TAKEDA-2025TUS046513

PATIENT
  Sex: Male

DRUGS (1)
  1. VEDOLIZUMAB [Suspect]
     Active Substance: VEDOLIZUMAB
     Indication: Colitis ulcerative

REACTIONS (16)
  - Colitis ulcerative [Unknown]
  - Eructation [Unknown]
  - Skin discolouration [Unknown]
  - Colorectal adenoma [Unknown]
  - Large intestine polyp [Unknown]
  - Diverticulum intestinal [Unknown]
  - Skin exfoliation [Unknown]
  - Diarrhoea [Unknown]
  - Abdominal pain upper [Unknown]
  - Anal sphincter atony [Unknown]
  - Drug ineffective [Unknown]
  - Abdominal pain [Unknown]
  - Dyspnoea [Unknown]
  - Asthenia [Unknown]
  - Haemorrhoids [Unknown]
  - Fatigue [Unknown]
